FAERS Safety Report 17542091 (Version 3)
Quarter: 2020Q2

REPORT INFORMATION
  Report Type: Report from Study
  Country: CA (occurrence: CA)
  Receive Date: 20200313
  Receipt Date: 20200406
  Transmission Date: 20200713
  Serious: Yes (Other)
  Sender: FDA-Public Use
  Company Number: CA-BAUSCH-BL-2020-008218

PATIENT
  Age: 68 Year
  Sex: Female

DRUGS (1)
  1. ZAXINE (RIFAXIMIN) [Suspect]
     Active Substance: RIFAXIMIN
     Indication: HEPATIC ENCEPHALOPATHY
     Dosage: PRESCRIBED TWICE A DAY
     Route: 065

REACTIONS (3)
  - Inappropriate schedule of product administration [Unknown]
  - Hepatic cancer [Unknown]
  - Inability to afford medication [Unknown]
